FAERS Safety Report 21042003 (Version 1)
Quarter: 2022Q3

REPORT INFORMATION
  Report Type: Other
  Country: AU (occurrence: None)
  Receive Date: 20220705
  Receipt Date: 20220705
  Transmission Date: 20221026
  Serious: Yes (Disabling)
  Sender: FDA-Public Use
  Company Number: AU-ROCHE-3129901

PATIENT
  Sex: Male
  Weight: 98 kg

DRUGS (9)
  1. OCREVUS [Suspect]
     Active Substance: OCRELIZUMAB
     Indication: Multiple sclerosis
     Route: 042
  2. TAPENTADOL [Concomitant]
     Active Substance: TAPENTADOL
     Dosage: TAPENTADOL 150MG MODIFIED RELEASE TABLET (PALEXIA SR SUSTAINED RELEASE TABLETS) 150 MG DOSE: 1 TABLE
  3. PREGABALIN [Concomitant]
     Active Substance: PREGABALIN
     Route: 048
  4. PRAMIPEXOLE DIHYDROCHLORIDE [Concomitant]
     Active Substance: PRAMIPEXOLE DIHYDROCHLORIDE
     Route: 048
  5. FLUTICASONE PROPIONATE [Concomitant]
     Active Substance: FLUTICASONE PROPIONATE
     Dosage: 250 MCG PER ACTUATION
  6. SALMETEROL [Concomitant]
     Active Substance: SALMETEROL
     Dosage: 25MCG PER ACTUATION METERED DOSE INHALER (PAVTIDE MDI 250/25 METERED DOSE INHALER) 120 DOSE DOSE: 2
  7. ALBUTEROL [Concomitant]
     Active Substance: ALBUTEROL
     Dosage: 100MCG PER DOSE METERED DOSE INHALER (VENTOLIN CFC-FREE INHALER WITH COUNTER) 100 MCG/1 DOSE 200 DOS
  8. ACETAMINOPHEN [Concomitant]
     Active Substance: ACETAMINOPHEN
  9. CODEINE PHOSPHATE [Concomitant]
     Active Substance: CODEINE PHOSPHATE
     Dosage: 30MG ORAL TABLET (PANADEINE FORTE TABLETS) (500 MG/30 MG) DOSE: 2 TABLETS PRN
     Route: 048

REACTIONS (2)
  - Mobility decreased [Recovering/Resolving]
  - Fatigue [Recovering/Resolving]
